FAERS Safety Report 21273461 (Version 1)
Quarter: 2022Q3

REPORT INFORMATION
  Report Type: Spontaneous
  Country: US (occurrence: None)
  Receive Date: 20220829
  Receipt Date: 20220829
  Transmission Date: 20221026
  Serious: Yes (Life-Threatening, Hospitalization, Disabling, Other)
  Sender: FDA-Public Use
  Company Number: None

PATIENT
  Age: 52 Year
  Sex: Male
  Weight: 102.06 kg

DRUGS (1)
  1. VRAYLAR [Suspect]
     Active Substance: CARIPRAZINE

REACTIONS (12)
  - Adverse drug reaction [None]
  - Psychotic disorder [None]
  - Suicide attempt [None]
  - Hypertensive crisis [None]
  - Arrhythmia [None]
  - Chest pain [None]
  - Stress [None]
  - Imprisonment [None]
  - General physical health deterioration [None]
  - Physical abuse [None]
  - Neurotransmitter level altered [None]
  - Drug interaction [None]

NARRATIVE: CASE EVENT DATE: 20220822
